FAERS Safety Report 9872002 (Version 2)
Quarter: 2014Q1

REPORT INFORMATION
  Report Type: Spontaneous
  Country: US (occurrence: US)
  Receive Date: 20140205
  Receipt Date: 20140205
  Transmission Date: 20141002
  Serious: Yes (Disabling, Other)
  Sender: FDA-Public Use
  Company Number: US-GE HEALTHCARE MEDICAL DIAGNOSTICS-OSCN-PR-1007S-0195

PATIENT
  Age: 51 Year
  Sex: Male

DRUGS (26)
  1. OMNISCAN [Suspect]
     Indication: PRODUCT USED FOR UNKNOWN INDICATION
     Route: 042
     Dates: start: 20040330, end: 20040330
  2. MAGNEVIST [Suspect]
     Indication: PRODUCT USED FOR UNKNOWN INDICATION
     Route: 042
     Dates: start: 20040510, end: 20040510
  3. EPOGEN [Concomitant]
  4. ROCALTROL [Concomitant]
  5. ACEON [Concomitant]
  6. DIATX [Concomitant]
  7. DIOVAN [Concomitant]
  8. DEXSOL [Concomitant]
  9. TIAZAC [Concomitant]
  10. DOXAZOSIN [Concomitant]
  11. LISINOPRIL [Concomitant]
  12. LASIX [Concomitant]
  13. PREDNISONE [Concomitant]
  14. TRIAMCINOLONE [Concomitant]
  15. FLUTICASONE [Concomitant]
  16. VENOFER [Concomitant]
  17. TAZTIA [Concomitant]
  18. DILTIAZEM CD [Concomitant]
  19. ZEMPLAR [Concomitant]
  20. NORVASC [Concomitant]
  21. TOPROL XL [Concomitant]
  22. CLONIDINE [Concomitant]
  23. ASPIRIN [Concomitant]
  24. SODIUM BICARBONATE [Concomitant]
  25. NEPHROCAPS [Concomitant]
  26. ATENOLOL [Concomitant]

REACTIONS (1)
  - Nephrogenic systemic fibrosis [Not Recovered/Not Resolved]
